FAERS Safety Report 9868096 (Version 3)
Quarter: 2014Q2

REPORT INFORMATION
  Report Type: Spontaneous
  Country: US (occurrence: US)
  Receive Date: 20140204
  Receipt Date: 20140407
  Transmission Date: 20141212
  Serious: Yes (Hospitalization)
  Sender: FDA-Public Use
  Company Number: US-GLAXOSMITHKLINE-A1059464A

PATIENT
  Age: 63 Year
  Sex: Male
  Weight: 65.9 kg

DRUGS (3)
  1. ADVAIR [Suspect]
     Indication: CHRONIC OBSTRUCTIVE PULMONARY DISEASE
     Dosage: 1PUFF TWICE PER DAY
     Route: 055
     Dates: start: 20120121
  2. COMBIVENT [Concomitant]
  3. ALBUTEROL NEBULIZER SOLUTION [Concomitant]

REACTIONS (1)
  - Pneumonia [Recovered/Resolved]
